FAERS Safety Report 11215553 (Version 1)
Quarter: 2015Q2

REPORT INFORMATION
  Report Type: Spontaneous
  Country: US (occurrence: None)
  Receive Date: 20150611
  Receipt Date: 20150611
  Transmission Date: 20150821
  Serious: Yes (Hospitalization)
  Sender: FDA-Public Use
  Company Number: CC400231265

PATIENT
  Age: 23 Year
  Sex: Female
  Weight: 113 kg

DRUGS (2)
  1. CEFEPIME [Suspect]
     Active Substance: CEFEPIME\CEFEPIME HYDROCHLORIDE
     Indication: OSTEOMYELITIS
     Route: 042
     Dates: start: 20140524, end: 20140529
  2. GENTAMYCIN [Concomitant]
     Active Substance: GENTAMICIN

REACTIONS (2)
  - Pancytopenia [None]
  - Renal failure [None]
